FAERS Safety Report 7232629-X (Version None)
Quarter: 2011Q1

REPORT INFORMATION
  Report Type: 
  Country: None (occurrence: None)
  Receive Date: 20110119
  Receipt Date: 20110114
  Transmission Date: 20110831
  Serious: Yes (Death)
  Sender: FDA-Public Use
  Company Number: PHHY2011AR03265

PATIENT
  Sex: Male

DRUGS (1)
  1. TRILEPTAL [Suspect]
     Dosage: 1 DF, QD
     Dates: start: 20100401, end: 20101120

REACTIONS (1)
  - RENAL DISORDER [None]
